FAERS Safety Report 18984845 (Version 1)
Quarter: 2021Q1

REPORT INFORMATION
  Report Type: Spontaneous
  Country: US (occurrence: US)
  Receive Date: 20210309
  Receipt Date: 20210309
  Transmission Date: 20210420
  Serious: No
  Sender: FDA-Public Use
  Company Number: US-SA-2021SA076465

PATIENT
  Sex: Female
  Weight: 74.38 kg

DRUGS (6)
  1. AUBAGIO [Suspect]
     Active Substance: TERIFLUNOMIDE
     Indication: MULTIPLE SCLEROSIS
     Route: 048
     Dates: start: 2020
  2. CALCIUM [Concomitant]
     Active Substance: CALCIUM
  3. VITAMINS NOS [Concomitant]
     Active Substance: VITAMINS
  4. MAXEPA [Concomitant]
     Active Substance: DOCONEXENT\ICOSAPENT
  5. ZOLOFT [Concomitant]
     Active Substance: SERTRALINE HYDROCHLORIDE
  6. NON?ASPIRIN [Concomitant]
     Active Substance: ACETAMINOPHEN

REACTIONS (1)
  - Liver function test increased [Unknown]
